FAERS Safety Report 21923793 (Version 1)
Quarter: 2023Q1

REPORT INFORMATION
  Report Type: Report from Study
  Country: CA (occurrence: CA)
  Receive Date: 20230130
  Receipt Date: 20230130
  Transmission Date: 20230417
  Serious: Yes (Other)
  Sender: FDA-Public Use
  Company Number: CA-CELLTRION INC.-2023CA001835

PATIENT

DRUGS (1)
  1. TRUXIMA [Suspect]
     Active Substance: RITUXIMAB-ABBS
     Indication: Rheumatoid arthritis
     Dosage: 1000 MILLIGRAM
     Route: 042
     Dates: start: 20210527

REACTIONS (13)
  - Pemphigus [Unknown]
  - Joint swelling [Unknown]
  - Epistaxis [Unknown]
  - Gingival pain [Unknown]
  - Chapped lips [Unknown]
  - Mobility decreased [Unknown]
  - Fatigue [Unknown]
  - Pain [Unknown]
  - Musculoskeletal pain [Unknown]
  - Swelling face [Unknown]
  - Mouth ulceration [Unknown]
  - Nasopharyngitis [Unknown]
  - Influenza [Unknown]
